FAERS Safety Report 9721004 (Version 2)
Quarter: 2013Q4

REPORT INFORMATION
  Report Type: Spontaneous
  Country: NL (occurrence: NL)
  Receive Date: 20131129
  Receipt Date: 20131218
  Transmission Date: 20140711
  Serious: Yes (Other)
  Sender: FDA-Public Use
  Company Number: NL-TEVA-446127ISR

PATIENT
  Age: 36 Year
  Sex: Male

DRUGS (5)
  1. QUETIAPINE [Suspect]
     Dosage: 600 MILLIGRAM DAILY;
     Route: 065
  2. VENLAFAXINE [Concomitant]
     Dosage: 225 MILLIGRAM DAILY;
     Route: 065
  3. PROMETHAZINE [Concomitant]
     Dosage: 25 MILLIGRAM DAILY;
     Route: 065
  4. LORAZEPAM [Concomitant]
     Dosage: 1 MILLIGRAM DAILY;
     Route: 065
  5. TEMAZEPAM [Concomitant]
     Dosage: 20 MILLIGRAM DAILY;
     Route: 065

REACTIONS (2)
  - Secondary adrenocortical insufficiency [Recovered/Resolved]
  - Hypothyroidism [Recovered/Resolved]
